FAERS Safety Report 9501102 (Version 1)
Quarter: 2013Q1

REPORT INFORMATION
  Report Type: Spontaneous
  Country: US (occurrence: None)
  Receive Date: 20130118
  Receipt Date: 20130118
  Transmission Date: 20140127
  Serious: Yes (Hospitalization, Other)
  Sender: FDA-Public Use
  Company Number: A-US2012-70157

PATIENT
  Age: 55 Year
  Sex: Female

DRUGS (4)
  1. TRACLEER [Suspect]
     Indication: PULMONARY ARTERIAL HYPERTENSION
     Route: 048
  2. LASIX (FUROSEMIDE) [Concomitant]
  3. FLOLAN [Suspect]
  4. REVATIO (SILDENAFIL CITRATE) (UNKNOWN) (SILDENAFIL) [Suspect]

REACTIONS (10)
  - Fluid retention [None]
  - Pericardial effusion [None]
  - Influenza like illness [None]
  - Colour blindness [None]
  - Visual impairment [None]
  - Hypoacusis [None]
  - Cough [None]
  - Migraine [None]
  - Weight increased [None]
  - Dyspnoea [None]
